FAERS Safety Report 8755754 (Version 2)
Quarter: 2012Q4

REPORT INFORMATION
  Report Type: 
  Country: US (occurrence: US)
  Receive Date: 20120827
  Receipt Date: 20120910
  Transmission Date: 20130627
  Serious: No
  Sender: FDA-Public Use
  Company Number: US-009507513-1208USA000824

PATIENT

DRUGS (1)
  1. MIRALAX [Suspect]
     Indication: CONSTIPATION
     Dosage: 8.5 g, UNK
     Route: 048
     Dates: start: 201206

REACTIONS (5)
  - Oedema peripheral [Unknown]
  - Incorrect drug administration duration [Unknown]
  - Underdose [Unknown]
  - Off label use [Unknown]
  - Drug ineffective [Unknown]
